FAERS Safety Report 5149003-2 (Version None)
Quarter: 2006Q4

REPORT INFORMATION
  Report Type: 
  Country: None (occurrence: None)
  Receive Date: 20061113
  Receipt Date: 20050721
  Transmission Date: 20070319
  Serious: Yes (Other)
  Sender: FDA-Public Use
  Company Number: US-GLAXOSMITHKLINE-A0567160A

PATIENT
  Age: 77 Year
  Sex: Male
  Weight: 84.1 kg

DRUGS (3)
  1. CONTAC 12-HOUR NON-DROWSY CAPLETS [Suspect]
     Route: 048
  2. WARFARIN SODIUM [Concomitant]
  3. ATENOLOL [Concomitant]

REACTIONS (4)
  - EXPIRED DRUG ADMINISTERED [None]
  - HAEMATOCHEZIA [None]
  - PENILE HAEMORRHAGE [None]
  - PROTHROMBIN TIME PROLONGED [None]
